FAERS Safety Report 8378725-5 (Version None)
Quarter: 2012Q2

REPORT INFORMATION
  Report Type: 
  Country: None (occurrence: None)
  Receive Date: 20120522
  Receipt Date: 20120511
  Transmission Date: 20120825
  Serious: Yes (Hospitalization)
  Sender: FDA-Public Use
  Company Number: FR-BAXTER-2012BAX005292

PATIENT
  Age: 68 Year
  Sex: Female

DRUGS (5)
  1. ARIXTRA [Concomitant]
     Dosage: 7.5 MG/0.6 ML
     Route: 058
  2. IFOSFAMIDE [Suspect]
     Route: 042
     Dates: start: 20120101, end: 20120208
  3. CISPLATIN [Suspect]
     Route: 042
     Dates: start: 20120101, end: 20120208
  4. DOXORUBICIN HYDROCHLORIDE [Suspect]
     Route: 065
     Dates: start: 20120101, end: 20120208
  5. LYRICA [Concomitant]
     Route: 065

REACTIONS (3)
  - RENAL FAILURE ACUTE [None]
  - PANCYTOPENIA [None]
  - HYPOKALAEMIA [None]
